FAERS Safety Report 8361689-8 (Version None)
Quarter: 2012Q2

REPORT INFORMATION
  Report Type: 
  Country: None (occurrence: None)
  Receive Date: 20120515
  Receipt Date: 20111007
  Transmission Date: 20120825
  Serious: No
  Sender: FDA-Public Use
  Company Number: US-ABBOTT-11P-163-0862940-00

PATIENT
  Sex: Female
  Weight: 113.5 kg

DRUGS (5)
  1. METHYLDOPA [Concomitant]
     Indication: PRODUCT USED FOR UNKNOWN INDICATION
  2. PROMETRIUM [Suspect]
     Indication: AMENORRHOEA
     Dates: start: 20111007, end: 20111007
  3. METFORMIN HCL [Concomitant]
     Indication: PRODUCT USED FOR UNKNOWN INDICATION
     Dosage: TOOK LAST DOSE TODAY.
     Dates: end: 20111007
  4. HYDORCHLOROTHIAZIDE [Concomitant]
     Indication: PRODUCT USED FOR UNKNOWN INDICATION
  5. LEVOXYL [Concomitant]
     Indication: PRODUCT USED FOR UNKNOWN INDICATION

REACTIONS (3)
  - DRUG DISPENSING ERROR [None]
  - CONTRAINDICATION TO MEDICAL TREATMENT [None]
  - DRUG PRESCRIBING ERROR [None]
